FAERS Safety Report 25002903 (Version 2)
Quarter: 2025Q2

REPORT INFORMATION
  Report Type: Spontaneous
  Country: PL (occurrence: PL)
  Receive Date: 20250224
  Receipt Date: 20250624
  Transmission Date: 20250717
  Serious: Yes (Disabling, Other)
  Sender: SANDOZ
  Company Number: PL-MLMSERVICE-20250210-PI402838-00101-1

PATIENT
  Age: 67 Year
  Sex: Female

DRUGS (2)
  1. CISPLATIN [Suspect]
     Active Substance: CISPLATIN
     Indication: Lung adenocarcinoma
     Route: 065
  2. PEMETREXED [Suspect]
     Active Substance: PEMETREXED
     Indication: Lung adenocarcinoma
     Route: 065

REACTIONS (2)
  - Peripheral ischaemia [Unknown]
  - Systemic scleroderma [Unknown]
